FAERS Safety Report 6329108-0 (Version None)
Quarter: 2009Q3

REPORT INFORMATION
  Report Type: 
  Country: None (occurrence: None)
  Receive Date: 20090826
  Receipt Date: 20090818
  Transmission Date: 20100115
  Serious: Yes (Other)
  Sender: FDA-Public Use
  Company Number: US-ROCHE-651248

PATIENT
  Age: 74 Year
  Sex: Female

DRUGS (2)
  1. XELODA [Suspect]
     Route: 048
     Dates: start: 20061129
  2. XELODA [Suspect]
     Dosage: DOSE DECREASED, FOR 14 DAYS, REPEAT EVERY 21 DAYS.
     Route: 048
     Dates: start: 20090811

REACTIONS (1)
  - COLON CANCER METASTATIC [None]
